FAERS Safety Report 8808411 (Version 2)
Quarter: 2012Q4

REPORT INFORMATION
  Report Type: 
  Country: US (occurrence: US)
  Receive Date: 20120926
  Receipt Date: 20121206
  Transmission Date: 20130627
  Serious: No
  Sender: FDA-Public Use
  Company Number: US-PFIZER INC-2012233492

PATIENT
  Age: 50 Year
  Sex: Male
  Weight: 69.84 kg

DRUGS (8)
  1. SUTENT [Suspect]
     Indication: RENAL CELL CARCINOMA STAGE IV
     Dosage: 50 mg, 1x/day, 1st 42-day cycle
     Route: 048
     Dates: start: 20120214
  2. SUTENT [Suspect]
     Dosage: 50 mg, 1x/day, 2nd 42-day cycle
     Route: 048
  3. SUTENT [Suspect]
     Dosage: 50 mg, 1x/day, 6th 42-day cycle
     Route: 048
     Dates: start: 20120911
  4. TRAZODONE [Suspect]
     Indication: INSOMNIA
     Dosage: 1-2 tablets daily at bedtime when necessary
  5. PRILOSEC [Suspect]
     Dosage: UNK
  6. MEGACE [Suspect]
     Indication: WEIGHT LOSS
     Dosage: 40 mg, 2 teaspoon twice daily
  7. MEGACE [Suspect]
     Indication: DECREASED APPETITE
  8. POTASSIUM CHLORIDE [Concomitant]
     Dosage: 3 times a day

REACTIONS (10)
  - Fatigue [Unknown]
  - Skin exfoliation [Unknown]
  - Dry skin [Unknown]
  - Weight decreased [Unknown]
  - Hypercalcaemia [Unknown]
  - Abdominal discomfort [Unknown]
  - Constipation [Unknown]
  - Dyspepsia [Unknown]
  - Gastrooesophageal reflux disease [Unknown]
  - Hypothyroidism [Unknown]
